FAERS Safety Report 15740399 (Version 1)
Quarter: 2018Q4

REPORT INFORMATION
  Report Type: Spontaneous
  Country: US (occurrence: US)
  Receive Date: 20181213
  Receipt Date: 20181213
  Transmission Date: 20190205
  Serious: Yes (Hospitalization)
  Sender: FDA-Public Use
  Company Number: None

PATIENT
  Sex: Male
  Weight: 102.3 kg

DRUGS (4)
  1. CYTARABINE. [Suspect]
     Active Substance: CYTARABINE
     Dates: end: 20181116
  2. PEG-L-ASPARAGINASE [Suspect]
     Active Substance: PEGASPARGASE
     Dates: end: 20181116
  3. ETOPOSIDE. [Suspect]
     Active Substance: ETOPOSIDE
     Dates: end: 20181116
  4. METHOTREXATE. [Suspect]
     Active Substance: METHOTREXATE
     Route: 037
     Dates: end: 20181112

REACTIONS (12)
  - Culture positive [None]
  - Rhinovirus infection [None]
  - Fatigue [None]
  - Erythema [None]
  - Productive cough [None]
  - Vomiting [None]
  - Bacterial infection [None]
  - Skin irritation [None]
  - Febrile neutropenia [None]
  - Oropharyngeal pain [None]
  - Syncope [None]
  - Tracheostomy malfunction [None]
